FAERS Safety Report 9939327 (Version 1)
Quarter: 2014Q1

REPORT INFORMATION
  Report Type: Report from Study
  Country: US (occurrence: US)
  Receive Date: 20140303
  Receipt Date: 20140303
  Transmission Date: 20141002
  Serious: No
  Sender: FDA-Public Use
  Company Number: US-ABBVIE-13P-163-1037711-00

PATIENT
  Age: 52 Year
  Sex: Female
  Weight: 86.26 kg

DRUGS (7)
  1. HUMIRA [Suspect]
     Indication: RHEUMATOID ARTHRITIS
     Dates: start: 2006
  2. NAPROXEN [Concomitant]
     Indication: PRODUCT USED FOR UNKNOWN INDICATION
  3. PLAQUENIL [Concomitant]
     Indication: PRODUCT USED FOR UNKNOWN INDICATION
  4. ACTONEL [Concomitant]
     Indication: OSTEOPOROSIS
  5. VITAMIN D NOS [Concomitant]
     Indication: OSTEOPOROSIS
  6. IRON [Concomitant]
     Indication: ANAEMIA
  7. LANSOPRAZOLE [Concomitant]
     Indication: GASTROOESOPHAGEAL REFLUX DISEASE

REACTIONS (2)
  - Bronchitis [Recovered/Resolved]
  - Gastroenteritis viral [Recovered/Resolved]
